FAERS Safety Report 4344803-0 (Version None)
Quarter: 2004Q2

REPORT INFORMATION
  Report Type: 
  Country: None (occurrence: None)
  Receive Date: 20040420
  Receipt Date: 20040406
  Transmission Date: 20050107
  Serious: Yes (Hospitalization)
  Sender: FDA-Public Use
  Company Number: US-JNJFOC-20031205501

PATIENT
  Age: 71 Year
  Sex: Female

DRUGS (3)
  1. REMICADE [Suspect]
     Indication: RHEUMATOID ARTHRITIS
     Dosage: 1 IN 8 WEK, INTRAVENOUS
     Route: 042
     Dates: start: 20030701
  2. METHOTREXATE [Concomitant]
  3. ZOLOFT [Concomitant]

REACTIONS (15)
  - ABDOMINAL DISTENSION [None]
  - CARDIAC FAILURE [None]
  - CHEST DISCOMFORT [None]
  - CHOLELITHIASIS [None]
  - CHRONIC OBSTRUCTIVE AIRWAYS DISEASE [None]
  - COR PULMONALE [None]
  - DIZZINESS [None]
  - DYSPHAGIA [None]
  - DYSPNOEA [None]
  - EMPHYSEMA [None]
  - FEELING ABNORMAL [None]
  - FEELING HOT [None]
  - HEADACHE [None]
  - LUNG NEOPLASM [None]
  - PEAK EXPIRATORY FLOW RATE DECREASED [None]
